FAERS Safety Report 9656643 (Version 3)
Quarter: 2013Q4

REPORT INFORMATION
  Report Type: Spontaneous
  Country: IT (occurrence: None)
  Receive Date: 20131028
  Receipt Date: 20131211
  Transmission Date: 20140711
  Serious: Yes (Hospitalization)
  Sender: FDA-Public Use
  Company Number: DSM-2013-00997

PATIENT
  Age: 74 Year
  Sex: Female

DRUGS (1)
  1. PLAUNAC [Suspect]
     Indication: HYPERTENSION
     Route: 048
     Dates: end: 20131005

REACTIONS (1)
  - Hyponatraemia [None]
